FAERS Safety Report 13690232 (Version 2)
Quarter: 2017Q2

REPORT INFORMATION
  Report Type: Report from Study
  Country: MX (occurrence: MX)
  Receive Date: 20170626
  Receipt Date: 20170628
  Transmission Date: 20170830
  Serious: Yes (Hospitalization, Other)
  Sender: FDA-Public Use
  Company Number: MX-BAYER-2017-079746

PATIENT
  Age: 25 Year
  Sex: Female

DRUGS (5)
  1. FOLIC ACID. [Concomitant]
     Active Substance: FOLIC ACID
     Dosage: 1 DF, QD
  2. BETAFERON [Suspect]
     Active Substance: INTERFERON BETA-1B
     Indication: MULTIPLE SCLEROSIS
     Dosage: UNK
     Dates: start: 20140303, end: 201704
  3. UTROGESTAN [Concomitant]
     Active Substance: PROGESTERONE
     Indication: VAGINAL DISCHARGE
     Dosage: 1 DF, QD
     Route: 048
  4. UTROGESTAN [Concomitant]
     Active Substance: PROGESTERONE
     Indication: VAGINAL DISCHARGE
     Dosage: 1 DF, ONCE
  5. RIOPAN [Concomitant]
     Active Substance: MAGALDRATE
     Dosage: 1 DF, PRN

REACTIONS (8)
  - Urinary tract infection [Not Recovered/Not Resolved]
  - Maternal exposure during pregnancy [Not Recovered/Not Resolved]
  - Abortion threatened [Recovered/Resolved]
  - Vaginal haemorrhage [Recovered/Resolved]
  - Abortion [None]
  - Vaginal discharge [Unknown]
  - Foetal growth restriction [None]
  - Dysuria [None]

NARRATIVE: CASE EVENT DATE: 201704
